FAERS Safety Report 15491640 (Version 1)
Quarter: 2018Q4

REPORT INFORMATION
  Report Type: Spontaneous
  Country: FR (occurrence: FR)
  Receive Date: 20181012
  Receipt Date: 20181012
  Transmission Date: 20190205
  Serious: Yes (Hospitalization)
  Sender: FDA-Public Use
  Company Number: FR-TEVA-2018-FR-963441

PATIENT
  Age: 65 Year
  Sex: Female

DRUGS (4)
  1. FONLIPOL [Suspect]
     Active Substance: TIADENOL
     Dosage: 4 DOSAGE FORMS DAILY;
     Route: 048
     Dates: end: 2005
  2. NEXEN [Suspect]
     Active Substance: NIMESULIDE
     Dosage: 200 MILLIGRAM DAILY;
     Route: 048
     Dates: end: 2005
  3. DAFLON (DIOSMIN) [Suspect]
     Active Substance: DIOSMIN
     Dosage: 1 DOSAGE FORMS DAILY; 1 DF DAILY
     Route: 065
     Dates: end: 2005
  4. FURADANTINE [Suspect]
     Active Substance: NITROFURANTOIN
     Indication: CYSTITIS
     Dosage: 1 DOSAGE FORMS DAILY;
     Route: 048
     Dates: start: 2001, end: 2005

REACTIONS (6)
  - Ascites [Unknown]
  - Varices oesophageal [Unknown]
  - Autoimmune hepatitis [Unknown]
  - Hepatic cirrhosis [Not Recovered/Not Resolved]
  - Oedema peripheral [Unknown]
  - Hepatic enzyme increased [Recovered/Resolved]

NARRATIVE: CASE EVENT DATE: 200501
